FAERS Safety Report 9002195 (Version 1)
Quarter: 2013Q1

REPORT INFORMATION
  Report Type: Spontaneous
  Country: DE (occurrence: DE)
  Receive Date: 20130107
  Receipt Date: 20130107
  Transmission Date: 20140127
  Serious: Yes (Disabling)
  Sender: FDA-Public Use
  Company Number: DE-009507513-1110DEU00017

PATIENT
  Sex: Female
  Weight: 57 kg

DRUGS (2)
  1. ZOCOR [Suspect]
     Dosage: UNK MG, UNK
     Route: 048
     Dates: start: 201003, end: 201106
  2. CONCOR [Concomitant]
     Dosage: 2.5 MG, QD
     Dates: start: 201003

REACTIONS (9)
  - Burning sensation [Not Recovered/Not Resolved]
  - Pain of skin [Not Recovered/Not Resolved]
  - Dry mouth [Not Recovered/Not Resolved]
  - Glossodynia [Not Recovered/Not Resolved]
  - Throat irritation [Not Recovered/Not Resolved]
  - Skin tightness [Not Recovered/Not Resolved]
  - Paraesthesia [Not Recovered/Not Resolved]
  - Myalgia [Not Recovered/Not Resolved]
  - Wrong technique in drug usage process [Unknown]
